FAERS Safety Report 7402832-4 (Version None)
Quarter: 2011Q2

REPORT INFORMATION
  Report Type: 
  Country: None (occurrence: None)
  Receive Date: 20110408
  Receipt Date: 20110315
  Transmission Date: 20111010
  Serious: No
  Sender: FDA-Public Use
  Company Number: US-B.I. PHARMACEUTICALS,INC./RIDGEFIELD-2011-BP-05479BP

PATIENT
  Age: 80 Year
  Sex: Female
  Weight: 63.5 kg

DRUGS (9)
  1. DIGOXIN [Concomitant]
  2. TOPROL-XL [Concomitant]
  3. PRADAXA [Suspect]
     Dates: end: 20110120
  4. MICARDIS [Concomitant]
  5. ACTOS [Concomitant]
  6. HYDRALAZINE [Concomitant]
  7. GLUCOTROL [Concomitant]
  8. CRESTOR [Concomitant]
  9. FELODIPINE [Concomitant]

REACTIONS (3)
  - PRURITUS GENERALISED [None]
  - FLATULENCE [None]
  - PRURITUS [None]
